FAERS Safety Report 8054284-1 (Version None)
Quarter: 2012Q1

REPORT INFORMATION
  Report Type: 
  Country: None (occurrence: None)
  Receive Date: 20120118
  Receipt Date: 20120111
  Transmission Date: 20120608
  Serious: Yes (Other)
  Sender: FDA-Public Use
  Company Number: PHHY2011JP95174

PATIENT
  Sex: Male
  Weight: 66 kg

DRUGS (4)
  1. ZOMETA [Suspect]
     Indication: METASTASES TO BONE
     Dosage: 4 MG,
     Route: 041
     Dates: start: 20110526, end: 20110922
  2. DOCETAXEL [Concomitant]
     Dosage: 90 MG, UNK
     Route: 042
     Dates: start: 20100729
  3. PREDNISOLONE [Concomitant]
     Dosage: 10 MG, UNK
     Route: 048
     Dates: start: 20100729
  4. ZOLADEX [Concomitant]
     Dosage: 10.8 MG, UNK
     Route: 058
     Dates: start: 20081211

REACTIONS (6)
  - GINGIVAL SWELLING [None]
  - GINGIVAL BLEEDING [None]
  - EXPOSED BONE IN JAW [None]
  - OSTEOMYELITIS [None]
  - GINGIVAL ERYTHEMA [None]
  - BONE LESION [None]
